FAERS Safety Report 9229660 (Version 1)
Quarter: 2013Q2

REPORT INFORMATION
  Report Type: Spontaneous
  Country: JP (occurrence: JP)
  Receive Date: 20130415
  Receipt Date: 20130415
  Transmission Date: 20140414
  Serious: Yes (Hospitalization)
  Sender: FDA-Public Use
  Company Number: JP-009507513-1304JPN005604

PATIENT
  Sex: 0

DRUGS (1)
  1. JANUVIA TABLETS 25MG [Suspect]
     Route: 048

REACTIONS (1)
  - Interstitial lung disease [Unknown]
